FAERS Safety Report 11811271 (Version 1)
Quarter: 2015Q4

REPORT INFORMATION
  Report Type: Spontaneous
  Country: FR (occurrence: FR)
  Receive Date: 20151208
  Receipt Date: 20151208
  Transmission Date: 20160305
  Serious: Yes (Hospitalization)
  Sender: FDA-Public Use
  Company Number: FR-JNJFOC-20151127087

PATIENT
  Age: 81 Year
  Sex: Male

DRUGS (7)
  1. RISPERDAL [Suspect]
     Active Substance: RISPERIDONE
     Indication: PRODUCT USED FOR UNKNOWN INDICATION
     Route: 048
     Dates: start: 20151009, end: 20151103
  2. SERESTA [Suspect]
     Active Substance: OXAZEPAM
     Indication: COGNITIVE DISORDER
     Route: 048
     Dates: start: 20140917
  3. JOSIR [Concomitant]
     Active Substance: TAMSULOSIN
     Dosage: IN THE MORNING.
     Route: 065
  4. AVODART [Concomitant]
     Active Substance: DUTASTERIDE
     Dosage: IN MORNING.
     Route: 065
  5. KARDEGIC [Concomitant]
     Active Substance: ASPIRIN LYSINE
     Dosage: 75 (UNITS UNSPECIFIED) AT NOON.
     Route: 065
  6. SILODYX [Concomitant]
     Active Substance: SILODOSIN
     Dosage: IN THE MORNING.
     Route: 065
  7. IMOVANE [Suspect]
     Active Substance: ZOPICLONE
     Indication: INSOMNIA
     Route: 048
     Dates: start: 20150625

REACTIONS (4)
  - Aphasia [Recovering/Resolving]
  - Disturbance in attention [Recovering/Resolving]
  - Confusional state [Recovering/Resolving]
  - Eye movement disorder [Unknown]

NARRATIVE: CASE EVENT DATE: 20151101
